FAERS Safety Report 9994882 (Version 2)
Quarter: 2014Q2

REPORT INFORMATION
  Report Type: Spontaneous
  Country: US (occurrence: None)
  Receive Date: 20140306
  Receipt Date: 20140407
  Transmission Date: 20141212
  Serious: Yes (Congenital Anomaly, Other)
  Sender: FDA-Public Use
  Company Number: 2014AP001515

PATIENT
  Sex: Male

DRUGS (1)
  1. PAROXETINE HCL TABLETS [Suspect]
     Indication: DEPRESSION
     Route: 064
     Dates: start: 199308, end: 199401

REACTIONS (4)
  - Multiple injuries [None]
  - Congenital cardiovascular anomaly [None]
  - Cardiac septal defect [None]
  - Maternal drugs affecting foetus [None]
